FAERS Safety Report 25327703 (Version 1)
Quarter: 2025Q2

REPORT INFORMATION
  Report Type: Spontaneous
  Country: US (occurrence: US)
  Receive Date: 20250517
  Receipt Date: 20250517
  Transmission Date: 20250717
  Serious: No
  Sender: SANOFI AVENTIS
  Company Number: US-SA-2025SA140559

PATIENT
  Age: 68 Year
  Sex: Male

DRUGS (3)
  1. DUPIXENT [Suspect]
     Active Substance: DUPILUMAB
     Indication: Pruritus
     Route: 058
     Dates: start: 202503, end: 202503
  2. DUPIXENT [Suspect]
     Active Substance: DUPILUMAB
     Indication: Rash papular
     Dosage: 300 MG, QOW
     Route: 058
     Dates: start: 2025
  3. METFORMIN [Concomitant]
     Active Substance: METFORMIN HYDROCHLORIDE

REACTIONS (1)
  - Product use in unapproved indication [Unknown]

NARRATIVE: CASE EVENT DATE: 20250301
